FAERS Safety Report 9022010 (Version 1)
Quarter: 2013Q1

REPORT INFORMATION
  Report Type: Spontaneous
  Country: US (occurrence: US)
  Receive Date: 20130118
  Receipt Date: 20130118
  Transmission Date: 20140127
  Serious: No
  Sender: FDA-Public Use
  Company Number: US-SANOFI-AVENTIS-2012SA039675

PATIENT
  Sex: Male

DRUGS (1)
  1. LASIX [Suspect]
     Route: 065

REACTIONS (2)
  - Oedema peripheral [Unknown]
  - Rash [Unknown]
